FAERS Safety Report 15403574 (Version 1)
Quarter: 2018Q3

REPORT INFORMATION
  Report Type: Spontaneous
  Country: US (occurrence: US)
  Receive Date: 20180919
  Receipt Date: 20180919
  Transmission Date: 20181010
  Serious: Yes (Death)
  Sender: FDA-Public Use
  Company Number: US-JNJFOC-20180920548

PATIENT
  Sex: Female

DRUGS (2)
  1. TYLENOL [Concomitant]
     Active Substance: ACETAMINOPHEN
  2. IMBRUVICA [Suspect]
     Active Substance: IBRUTINIB
     Indication: CHRONIC LYMPHOCYTIC LEUKAEMIA
     Route: 065
     Dates: start: 20180510

REACTIONS (1)
  - Death [Fatal]
